FAERS Safety Report 4512302-9 (Version None)
Quarter: 2004Q4

REPORT INFORMATION
  Report Type: 
  Country: None (occurrence: None)
  Receive Date: 20041129
  Receipt Date: 20041027
  Transmission Date: 20050328
  Serious: Yes (Hospitalization)
  Sender: FDA-Public Use
  Company Number: JP-GLAXOSMITHKLINE-B0350095A

PATIENT
  Age: 11 Year
  Sex: Male

DRUGS (7)
  1. SEREVENT [Suspect]
     Indication: ASTHMA
     Dosage: 50MCG PER DAY
     Route: 055
     Dates: start: 20041014, end: 20041015
  2. CLARITH [Suspect]
     Indication: PHARYNGITIS
     Dosage: 200MG TWICE PER DAY
     Route: 048
     Dates: start: 20041015, end: 20041016
  3. FLUTICASONE PROPIONATE [Concomitant]
     Indication: ASTHMA
     Dosage: 100MCG PER DAY
     Route: 055
     Dates: start: 20041008
  4. ARDEPHYLLIN [Concomitant]
     Indication: ASTHMA
     Dosage: 300MG PER DAY
     Route: 048
     Dates: start: 20041001
  5. SAIBOKU-TO [Concomitant]
     Indication: ASTHMA
     Dosage: 2UNIT PER DAY
     Route: 048
  6. INTAL [Concomitant]
     Indication: ASTHMA
     Dosage: 1UNIT PER DAY
     Route: 055
     Dates: start: 20040419
  7. CLARITIN [Concomitant]
     Indication: RHINITIS ALLERGIC
     Dosage: 1TAB PER DAY
     Route: 048
     Dates: start: 20040807

REACTIONS (10)
  - DECREASED APPETITE [None]
  - EYE DISCHARGE [None]
  - FACE OEDEMA [None]
  - GENERALISED ERYTHEMA [None]
  - MORPHOEA [None]
  - MUSCULOSKELETAL STIFFNESS [None]
  - OEDEMA [None]
  - PRURITUS [None]
  - PYREXIA [None]
  - SKIN DESQUAMATION [None]
